FAERS Safety Report 12632986 (Version 2)
Quarter: 2016Q3

REPORT INFORMATION
  Report Type: Spontaneous
  Country: US (occurrence: US)
  Receive Date: 20160808
  Receipt Date: 20160808
  Transmission Date: 20161109
  Serious: No
  Sender: FDA-Public Use
  Company Number: US-BEH-2016057986

PATIENT
  Sex: Female
  Weight: 110 kg

DRUGS (34)
  1. HIZENTRA [Suspect]
     Active Substance: HUMAN IMMUNOGLOBULIN G
     Indication: IMMUNODEFICIENCY COMMON VARIABLE
     Route: 058
     Dates: start: 20141009
  2. EPIPEN [Concomitant]
     Active Substance: EPINEPHRINE
  3. IRON [Concomitant]
     Active Substance: IRON
  4. TESTOSTERONE. [Concomitant]
     Active Substance: TESTOSTERONE
  5. NYSTATIN. [Concomitant]
     Active Substance: NYSTATIN
  6. ALEVE [Concomitant]
     Active Substance: NAPROXEN SODIUM
  7. DIPHENHYDRAMINE. [Concomitant]
     Active Substance: DIPHENHYDRAMINE
  8. VITAMIN B12 [Concomitant]
     Active Substance: CYANOCOBALAMIN
  9. L-LYSINE [Concomitant]
     Active Substance: LYSINE
  10. XOPENEX [Concomitant]
     Active Substance: LEVALBUTEROL HYDROCHLORIDE
  11. ACETAMINOPHEN. [Concomitant]
     Active Substance: ACETAMINOPHEN
  12. OMEPRAZOLE. [Concomitant]
     Active Substance: OMEPRAZOLE
  13. CO ENZYME [Concomitant]
  14. PROBIOTIC [Concomitant]
     Active Substance: PROBIOTICS NOS
  15. EVOXAC [Concomitant]
     Active Substance: CEVIMELINE HYDROCHLORIDE
  16. MULTIVITAMIN [Concomitant]
     Active Substance: VITAMINS
  17. METFORMIN [Concomitant]
     Active Substance: METFORMIN HYDROCHLORIDE
  18. PROGESTERONE. [Concomitant]
     Active Substance: PROGESTERONE
  19. SYMBICORT [Concomitant]
     Active Substance: BUDESONIDE\FORMOTEROL FUMARATE DIHYDRATE
  20. CEFTRIAXONE. [Concomitant]
     Active Substance: CEFTRIAXONE
  21. XYZAL [Concomitant]
     Active Substance: LEVOCETIRIZINE DIHYDROCHLORIDE
  22. CYTOMEL [Concomitant]
     Active Substance: LIOTHYRONINE SODIUM
  23. TYLENOL [Concomitant]
     Active Substance: ACETAMINOPHEN
  24. SINGULAIR [Concomitant]
     Active Substance: MONTELUKAST SODIUM
  25. LMX [Concomitant]
     Active Substance: LIDOCAINE
  26. DIFUCAN [Concomitant]
  27. PROPANOLOL [Concomitant]
     Active Substance: PROPRANOLOL HYDROCHLORIDE
  28. TUMERIC [Concomitant]
     Active Substance: TURMERIC
  29. PREDNISONE. [Concomitant]
     Active Substance: PREDNISONE
  30. ZANTAC [Concomitant]
     Active Substance: RANITIDINE HYDROCHLORIDE
  31. MUCINEX [Concomitant]
     Active Substance: GUAIFENESIN
  32. DHEA [Concomitant]
     Active Substance: PRASTERONE
  33. GRAPE SEED [Concomitant]
  34. ASTELIN [Concomitant]
     Active Substance: AZELASTINE HYDROCHLORIDE

REACTIONS (2)
  - Infusion site extravasation [Unknown]
  - Administration site scar [Unknown]
